FAERS Safety Report 16258409 (Version 7)
Quarter: 2019Q3

REPORT INFORMATION
  Report Type: Report from Study
  Country: US (occurrence: US)
  Receive Date: 20190430
  Receipt Date: 20190926
  Transmission Date: 20191004
  Serious: Yes (Hospitalization)
  Sender: FDA-Public Use
  Company Number: US-ACTELION-A-NJ2019-189572

PATIENT
  Sex: Female
  Weight: 77.1 kg

DRUGS (2)
  1. OPSUMIT [Suspect]
     Active Substance: MACITENTAN
     Indication: PULMONARY ARTERIAL HYPERTENSION
     Dosage: 10 MG, QD
     Route: 048
     Dates: start: 20190325, end: 20190813
  2. OXYGEN. [Concomitant]
     Active Substance: OXYGEN
     Dosage: 3 L

REACTIONS (12)
  - Pain in extremity [Unknown]
  - Feeling cold [Unknown]
  - Weight increased [Unknown]
  - Therapy non-responder [Unknown]
  - Tension headache [Unknown]
  - Swelling [Recovered/Resolved]
  - Weight decreased [Not Recovered/Not Resolved]
  - Peripheral swelling [Recovered/Resolved]
  - Fluid retention [Unknown]
  - Oedema peripheral [Unknown]
  - Decreased appetite [Unknown]
  - Headache [Unknown]
